FAERS Safety Report 7422442-2 (Version None)
Quarter: 2011Q2

REPORT INFORMATION
  Report Type: 
  Country: None (occurrence: None)
  Receive Date: 20110419
  Receipt Date: 20110408
  Transmission Date: 20111010
  Serious: No
  Sender: FDA-Public Use
  Company Number: US-BIOGENIDEC-2011BI013681

PATIENT
  Age: 46 Year
  Sex: Female

DRUGS (2)
  1. DIAZEPAM [Concomitant]
     Indication: PRODUCT USED FOR UNKNOWN INDICATION
  2. TYSABRI [Suspect]
     Indication: MULTIPLE SCLEROSIS
     Route: 042
     Dates: start: 20100412

REACTIONS (3)
  - DYSARTHRIA [None]
  - BLADDER DISORDER [None]
  - COMMUNICATION DISORDER [None]
